FAERS Safety Report 20462367 (Version 2)
Quarter: 2022Q1

REPORT INFORMATION
  Report Type: Report from Study
  Country: DE (occurrence: None)
  Receive Date: 20220211
  Receipt Date: 20220215
  Transmission Date: 20220423
  Serious: Yes (Death)
  Sender: FDA-Public Use
  Company Number: DE-ROCHE-3022828

PATIENT
  Age: 55 Year
  Sex: Female
  Weight: 122 kg

DRUGS (8)
  1. OCRELIZUMAB [Suspect]
     Active Substance: OCRELIZUMAB
     Indication: Relapsing-remitting multiple sclerosis
     Dosage: MOST RECENT DOSE OF OCRELIZUMAB (600 MG) PRIOR TO THIS EVENT WAS RECEIVED ON 11/OCT/2021.?300-MILLIG
     Route: 042
     Dates: start: 20190508
  2. METHYLPREDNISOLONE [Suspect]
     Active Substance: METHYLPREDNISOLONE
     Indication: Relapsing-remitting multiple sclerosis
     Dosage: LAST DOSE OF METHYLPREDNISOLONE ADMINISTERED PRIOR TO THIS EVENT WAS 100 MG.?SUBSEQUENT DOSES WERE R
     Route: 042
     Dates: start: 20190508
  3. LEVOTHYROXINE SODIUM [Concomitant]
     Active Substance: LEVOTHYROXINE SODIUM
     Route: 048
  4. METRONIDAZOLE [Concomitant]
     Active Substance: METRONIDAZOLE
     Indication: Urinary tract infection
     Route: 048
     Dates: start: 20211003
  5. MODAFINIL [Concomitant]
     Active Substance: MODAFINIL
     Route: 048
     Dates: start: 20201022
  6. PREGABALIN [Concomitant]
     Active Substance: PREGABALIN
     Route: 048
  7. SERTRALINE HYDROCHLORIDE [Concomitant]
     Active Substance: SERTRALINE HYDROCHLORIDE
     Route: 048
     Dates: start: 20200522
  8. SPASMEX (GERMANY) [Concomitant]
     Route: 048
     Dates: start: 20210412

REACTIONS (1)
  - COVID-19 [Fatal]

NARRATIVE: CASE EVENT DATE: 20211211
